FAERS Safety Report 5887102-8 (Version None)
Quarter: 2008Q3

REPORT INFORMATION
  Report Type: 
  Country: None (occurrence: None)
  Receive Date: 20080917
  Receipt Date: 20080905
  Transmission Date: 20090109
  Serious: Yes (Other)
  Sender: FDA-Public Use
  Company Number: IE-PFIZER INC-2008061563

PATIENT
  Sex: Male
  Weight: 80 kg

DRUGS (1)
  1. CHANTIX [Suspect]
     Indication: SMOKING CESSATION THERAPY
     Route: 048
     Dates: start: 20080410, end: 20080415

REACTIONS (4)
  - HALLUCINATION [None]
  - HOMICIDAL IDEATION [None]
  - NIGHTMARE [None]
  - SUICIDAL IDEATION [None]
